FAERS Safety Report 9606416 (Version 2)
Quarter: 2014Q2

REPORT INFORMATION
  Report Type: Spontaneous
  Country: US (occurrence: US)
  Receive Date: 20131008
  Receipt Date: 20140611
  Transmission Date: 20141212
  Serious: Yes (Other)
  Sender: FDA-Public Use
  Company Number: US-AMGEN-USASP2013051632

PATIENT
  Age: 67 Year
  Sex: Female

DRUGS (17)
  1. PROLIA [Suspect]
     Indication: OSTEOPOROSIS POSTMENOPAUSAL
     Dosage: UNK
     Route: 065
     Dates: start: 201201
  2. NOVOLOG [Concomitant]
     Dosage: 19 UNIT, BID
     Dates: start: 2011
  3. LANTUS [Concomitant]
     Dosage: 30 UNIT, BID
     Dates: start: 2011
  4. DIOVAN [Concomitant]
     Dosage: 160 MG, QD
  5. CARVEDILOL [Concomitant]
     Dosage: UNK UNK, BID
  6. NORVASC [Concomitant]
     Dosage: 10 MG, QD
  7. CRESTOR [Concomitant]
     Dosage: 5 MG, QD
  8. MAGNESIUM OXIDE [Concomitant]
     Dosage: 400 MG, UNK
  9. OXYBUTYNIN [Concomitant]
     Dosage: UNK UNK, BID
  10. LOVAZA [Concomitant]
     Dosage: 1 G, UNK
  11. CYMBALTA [Concomitant]
     Dosage: 60 MG, QD
  12. CENTRUM SILVER                     /02363801/ [Concomitant]
     Dosage: 1 UNK, QD
  13. CITRACAL PLUS [Concomitant]
     Dosage: UNK UNK, BID
  14. VITAMIN D3 [Concomitant]
     Dosage: 5000 IU, QD
  15. B12                                /00056201/ [Concomitant]
     Dosage: 2500 MEQ, QD
  16. COQ10                              /00517201/ [Concomitant]
     Dosage: 100 MG, QD
  17. ASPIRIN [Concomitant]
     Dosage: 325 MG, QD

REACTIONS (5)
  - Tooth abscess [Unknown]
  - Osteonecrosis of jaw [Unknown]
  - Gingivitis [Unknown]
  - Blood glucose abnormal [Unknown]
  - Dermatitis psoriasiform [Unknown]
